FAERS Safety Report 5737280-6 (Version None)
Quarter: 2008Q2

REPORT INFORMATION
  Report Type: 
  Country: None (occurrence: None)
  Receive Date: 20080512
  Receipt Date: 20080512
  Transmission Date: 20081010
  Serious: Yes (Life-Threatening, Hospitalization)
  Sender: FDA-Public Use
  Company Number: None

PATIENT
  Age: 94 Year
  Sex: Female
  Weight: 43.5453 kg

DRUGS (1)
  1. DIGITEK 0.125MG MYLAN BERT [Suspect]
     Indication: PERICARDIAL EFFUSION
     Dosage: 1 TABLET 1 TIME DAILY
     Dates: start: 20060301, end: 20080211

REACTIONS (5)
  - BLOOD GLUCOSE INCREASED [None]
  - CARDIAC FAILURE [None]
  - CONDITION AGGRAVATED [None]
  - DIZZINESS [None]
  - THERAPEUTIC AGENT TOXICITY [None]
